FAERS Safety Report 8916765 (Version 2)
Quarter: 2013Q1

REPORT INFORMATION
  Report Type: Spontaneous
  Country: JP (occurrence: JP)
  Receive Date: 20121120
  Receipt Date: 20130122
  Transmission Date: 20140127
  Serious: Yes (Hospitalization)
  Sender: FDA-Public Use
  Company Number: JP-009507513-1211JPN007030

PATIENT
  Age: 34 Year
  Sex: Male

DRUGS (6)
  1. JANUVIA TABLETS 50MG [Suspect]
     Indication: DIABETES MELLITUS
     Dosage: 50 MG, QD
     Route: 048
     Dates: start: 20121028, end: 20121031
  2. CRESTOR [Concomitant]
     Route: 048
  3. PICILLIBACTA [Concomitant]
     Route: 042
  4. FERROMIA [Concomitant]
     Route: 048
  5. NOVORAPID [Concomitant]
     Route: 058
  6. LANTUS [Concomitant]
     Route: 058

REACTIONS (1)
  - Drug eruption [Unknown]
